FAERS Safety Report 6892835-0 (Version None)
Quarter: 2010Q3

REPORT INFORMATION
  Report Type: 
  Country: None (occurrence: None)
  Receive Date: 20100731
  Receipt Date: 20081106
  Transmission Date: 20110219
  Serious: No
  Sender: FDA-Public Use
  Company Number: US-PFIZER INC-2008081108

PATIENT
  Sex: Male
  Weight: 120.45 kg

DRUGS (18)
  1. CAVERJECT [Suspect]
     Indication: ERECTILE DYSFUNCTION
     Dates: start: 19970101
  2. CAVERJECT [Suspect]
     Indication: ERECTILE DYSFUNCTION
     Dates: end: 20080101
  3. VIAGRA [Suspect]
  4. ATENOLOL [Concomitant]
  5. AMLODIPINE BESYLATE [Concomitant]
  6. GLYBURIDE [Concomitant]
  7. NPH INSULIN [Concomitant]
  8. LISINOPRIL [Concomitant]
  9. METFORMIN HCL [Concomitant]
  10. NAPROXEN [Concomitant]
  11. HYDROCHLOROTHIAZIDE [Concomitant]
  12. TERAZOSIN HCL [Concomitant]
  13. COUGH SYRUP [Concomitant]
  14. ZETIA [Concomitant]
     Indication: BLOOD CHOLESTEROL
  15. ALL OTHER THERAPEUTIC PRODUCTS [Concomitant]
  16. ACETAMINOPHEN [Concomitant]
  17. ACETYLSALICYLIC ACID SRT [Concomitant]
  18. OTHER DERMATOLOGICAL PREPARATIONS [Concomitant]

REACTIONS (3)
  - CYANOPSIA [None]
  - DRUG INEFFECTIVE [None]
  - FRUSTRATION [None]
